FAERS Safety Report 24056530 (Version 1)
Quarter: 2024Q3

REPORT INFORMATION
  Report Type: Spontaneous
  Country: FR (occurrence: FR)
  Receive Date: 20240705
  Receipt Date: 20240705
  Transmission Date: 20241016
  Serious: Yes (Other)
  Sender: TEVA
  Company Number: FR-TEVA-VS-3214234

PATIENT
  Age: 33 Year
  Sex: Female

DRUGS (2)
  1. TRAMADOL [Suspect]
     Active Substance: TRAMADOL\TRAMADOL HYDROCHLORIDE
     Indication: Product used for unknown indication
     Dosage: 7 TRAMADOL LP 100 MG TABLETS (POSSIBLE TEVA DRUG) IN THE MORNING AND 6 IN THE EVENING (I.E. 1,300...
     Route: 065
  2. TRAMADOL [Suspect]
     Active Substance: TRAMADOL\TRAMADOL HYDROCHLORIDE
     Indication: Product used for unknown indication
     Dosage: 2 TABLETS PER DAY
     Route: 065

REACTIONS (3)
  - Epilepsy [Unknown]
  - Prescribed overdose [Unknown]
  - Drug use disorder [Unknown]
